FAERS Safety Report 13048925 (Version 5)
Quarter: 2018Q2

REPORT INFORMATION
  Report Type: Report from Study
  Country: GR (occurrence: GR)
  Receive Date: 20161221
  Receipt Date: 20180613
  Transmission Date: 20180711
  Serious: Yes (Other)
  Sender: FDA-Public Use
  Company Number: GR-ROCHE-1711307

PATIENT

DRUGS (2)
  1. RITUXIMAB. [Suspect]
     Active Substance: RITUXIMAB
     Indication: WALDENSTROM^S MACROGLOBULINAEMIA
     Dosage: 375 MG PER SQUARE METER OF BODY-SURFACE AREA, WITH INFUSIONS AT WEEKS 1 TO 4 AND 17 TO 20
     Route: 042
  2. IBRUTINIB [Suspect]
     Active Substance: IBRUTINIB
     Indication: WALDENSTROM^S MACROGLOBULINAEMIA
     Route: 048

REACTIONS (14)
  - Pneumonia [Unknown]
  - Cardiac failure congestive [Unknown]
  - Infusion related reaction [Unknown]
  - Anaemia [Unknown]
  - Thrombocytopenia [Unknown]
  - Atrial fibrillation [Unknown]
  - Gastroenteritis [Unknown]
  - Neutropenia [Unknown]
  - Respiratory tract infection [Unknown]
  - Fall [Unknown]
  - Arthralgia [Unknown]
  - Hyponatraemia [Unknown]
  - Myocardial ischaemia [Unknown]
  - Hypertension [Unknown]
